FAERS Safety Report 13108600 (Version 1)
Quarter: 2017Q1

REPORT INFORMATION
  Report Type: Spontaneous
  Country: US (occurrence: US)
  Receive Date: 20170112
  Receipt Date: 20170112
  Transmission Date: 20170428
  Serious: Yes (Hospitalization)
  Sender: FDA-Public Use
  Company Number: US-UNITED THERAPEUTICS-UNT-2017-000235

PATIENT
  Sex: Female

DRUGS (1)
  1. REMODULIN [Suspect]
     Active Substance: TREPROSTINIL
     Indication: PULMONARY ARTERIAL HYPERTENSION
     Dosage: 0.0187 ?G/KG, CONTINUING
     Route: 058
     Dates: start: 20151229

REACTIONS (4)
  - Pyrexia [Unknown]
  - Oxygen consumption increased [Unknown]
  - Therapy non-responder [Unknown]
  - Influenza [Unknown]

NARRATIVE: CASE EVENT DATE: 201612
